FAERS Safety Report 20627647 (Version 1)
Quarter: 2022Q1

REPORT INFORMATION
  Report Type: Spontaneous
  Country: FR (occurrence: FR)
  Receive Date: 20220323
  Receipt Date: 20220323
  Transmission Date: 20220423
  Serious: Yes (Hospitalization)
  Sender: FDA-Public Use
  Company Number: None

PATIENT
  Age: 76 Year
  Sex: Male
  Weight: 63 kg

DRUGS (34)
  1. VINCRISTINE [Suspect]
     Active Substance: VINCRISTINE
     Dosage: 2 MG,  (1.004 MG/M2)
     Route: 042
     Dates: start: 20210716, end: 20210716
  2. VINCRISTINE [Suspect]
     Active Substance: VINCRISTINE
     Dosage: 2 MG, (1.011 MG/M2)
     Route: 042
     Dates: start: 20210805, end: 20210805
  3. VINCRISTINE [Suspect]
     Active Substance: VINCRISTINE
     Dosage: 2 MG, (1.011 MG/M2)
     Route: 042
     Dates: start: 20210826, end: 20210826
  4. VINCRISTINE [Suspect]
     Active Substance: VINCRISTINE
     Dosage: 2 MG, (1.011 MG/M2)
     Route: 042
     Dates: start: 20210916, end: 20210916
  5. VINCRISTINE [Suspect]
     Active Substance: VINCRISTINE
     Dosage: 2 MG, (1.011 MG/M2)
     Route: 042
     Dates: start: 20211020, end: 20211020
  6. MIANSERIN HYDROCHLORIDE [Suspect]
     Active Substance: MIANSERIN HYDROCHLORIDE
     Dosage: 30 MG, 1X/DAY
     Route: 048
     Dates: start: 20210916
  7. RITUXIMAB [Suspect]
     Active Substance: RITUXIMAB
     Indication: Diffuse large B-cell lymphoma stage IV
     Dosage: 720 MG (375 MG/M2)
     Route: 042
     Dates: start: 20210805, end: 20210805
  8. RITUXIMAB [Suspect]
     Active Substance: RITUXIMAB
     Dosage: 720 MG (375 MG/M2)
     Route: 042
     Dates: start: 20210826, end: 20210826
  9. RITUXIMAB [Suspect]
     Active Substance: RITUXIMAB
     Dosage: 700 MG (375 MG/M2)
     Route: 042
     Dates: start: 20210916, end: 20210916
  10. RITUXIMAB [Suspect]
     Active Substance: RITUXIMAB
     Dosage: 700 MG (375 MG/M2)
     Route: 042
     Dates: start: 20211020, end: 20211020
  11. METHYLPREDNISOLONE HEMISUCCINATE [Suspect]
     Active Substance: METHYLPREDNISOLONE HEMISUCCINATE
     Indication: Diffuse large B-cell lymphoma stage IV
     Dosage: 80 MG (40 MG/M2)
     Route: 042
     Dates: start: 20210716, end: 20210716
  12. METHYLPREDNISOLONE HEMISUCCINATE [Suspect]
     Active Substance: METHYLPREDNISOLONE HEMISUCCINATE
     Dosage: 80 MG (40 MG/M2)
     Route: 042
     Dates: start: 20210805, end: 20210805
  13. METHYLPREDNISOLONE HEMISUCCINATE [Suspect]
     Active Substance: METHYLPREDNISOLONE HEMISUCCINATE
     Dosage: 80 MG (40 MG/M2)
     Route: 042
     Dates: start: 20210826, end: 20210826
  14. METHYLPREDNISOLONE HEMISUCCINATE [Suspect]
     Active Substance: METHYLPREDNISOLONE HEMISUCCINATE
     Dosage: 80 MG (40 MG/M2)
     Route: 042
     Dates: start: 20210916, end: 20210916
  15. METHYLPREDNISOLONE HEMISUCCINATE [Suspect]
     Active Substance: METHYLPREDNISOLONE HEMISUCCINATE
     Dosage: 70 MG (40 MG/M2)
     Route: 042
     Dates: start: 20211020, end: 20211020
  16. DOXORUBICIN [Suspect]
     Active Substance: DOXORUBICIN
     Indication: Diffuse large B-cell lymphoma stage IV
     Dosage: 100 MG, (50 MG/M2)
     Route: 042
     Dates: start: 20210716, end: 20210716
  17. DOXORUBICIN [Suspect]
     Active Substance: DOXORUBICIN
     Dosage: 95 MG (50 MG/M2
     Route: 042
     Dates: start: 20210805, end: 20210805
  18. DOXORUBICIN [Suspect]
     Active Substance: DOXORUBICIN
     Dosage: 95 MG, (50 MG/M2)
     Route: 042
     Dates: start: 20210826, end: 20210826
  19. DOXORUBICIN [Suspect]
     Active Substance: DOXORUBICIN
     Dosage: 96 MG, (50 MG/M2)
     Route: 042
     Dates: start: 20210916, end: 20210916
  20. DOXORUBICIN [Suspect]
     Active Substance: DOXORUBICIN
     Dosage: 92 MG, (50 MG/M2)
     Route: 042
     Dates: start: 20211020, end: 20211020
  21. CYCLOPHOSPHAMIDE [Suspect]
     Active Substance: CYCLOPHOSPHAMIDE
     Indication: Diffuse large B-cell lymphoma stage IV
     Dosage: 1500 MG, (750 MG/M2)
     Route: 042
     Dates: start: 20210716, end: 20210716
  22. CYCLOPHOSPHAMIDE [Suspect]
     Active Substance: CYCLOPHOSPHAMIDE
     Dosage: 1400 MG,(750 MG/M2)
     Route: 042
     Dates: start: 20210805, end: 20210805
  23. CYCLOPHOSPHAMIDE [Suspect]
     Active Substance: CYCLOPHOSPHAMIDE
     Dosage: 1400 MG,(750 MG/M2)
     Route: 042
     Dates: start: 20210826, end: 20210826
  24. CYCLOPHOSPHAMIDE [Suspect]
     Active Substance: CYCLOPHOSPHAMIDE
     Dosage: 1500 MG, (750 MG/M2)
     Route: 042
     Dates: start: 20210916, end: 20210916
  25. CYCLOPHOSPHAMIDE [Suspect]
     Active Substance: CYCLOPHOSPHAMIDE
     Dosage: 1380 MG , (750 MG/M2)
     Route: 042
     Dates: start: 20211020, end: 20211020
  26. TRUXIMA [Suspect]
     Active Substance: RITUXIMAB-ABBS
     Indication: Diffuse large B-cell lymphoma stage IV
     Dosage: 750 MG/M2
     Route: 042
     Dates: start: 20210716, end: 20210716
  27. ACETAMINOPHEN [Concomitant]
     Active Substance: ACETAMINOPHEN
  28. FILGRASTIM [Concomitant]
     Active Substance: FILGRASTIM
  29. PANTOPRAZOLE [Concomitant]
     Active Substance: PANTOPRAZOLE
  30. VALACYCLOVIR HYDROCHLORIDE [Concomitant]
     Active Substance: VALACYCLOVIR HYDROCHLORIDE
  31. ALLOPURINOL [Concomitant]
     Active Substance: ALLOPURINOL
  32. ERYTHROPOIETIN [Concomitant]
     Active Substance: ERYTHROPOIETIN
  33. BISOPROLOL [Concomitant]
     Active Substance: BISOPROLOL
  34. POTASSIUM CHLORIDE [Concomitant]
     Active Substance: POTASSIUM CHLORIDE

REACTIONS (1)
  - Impaired gastric emptying [Not Recovered/Not Resolved]

NARRATIVE: CASE EVENT DATE: 20211109
